FAERS Safety Report 8427112-X (Version None)
Quarter: 2012Q2

REPORT INFORMATION
  Report Type: 
  Country: None (occurrence: None)
  Receive Date: 20120323
  Receipt Date: 20110524
  Transmission Date: 20120825
  Serious: Yes (Other)
  Sender: FDA-Public Use
  Company Number: 163-21880-11043526

PATIENT
  Age: 56 Year
  Sex: Male

DRUGS (12)
  1. ASPIRIN [Concomitant]
  2. QVAR (BECLOMETASONE DIPROPIONATE)(UNKNOWN) [Concomitant]
  3. PROAIR (FLUTICASONE PROPIONATE)(UNKNOWN) [Concomitant]
  4. PANTOPRAZOLE [Concomitant]
  5. LENALIDOMIDE [Suspect]
     Indication: MULTIPLE MYELOMA
     Dosage: 5 MG, DAILY X 21D/28D,  5 MG, 1 IN 1 D, PO
     Route: 048
     Dates: start: 20101201, end: 20110405
  6. LENALIDOMIDE [Suspect]
     Indication: MULTIPLE MYELOMA
     Dosage: 5 MG, DAILY X 21D/28D,  5 MG, 1 IN 1 D, PO
     Route: 048
     Dates: start: 20090201, end: 20090601
  7. LENALIDOMIDE [Suspect]
     Indication: MULTIPLE MYELOMA
     Dosage: 5 MG, DAILY X 21D/28D,  5 MG, 1 IN 1 D, PO
     Route: 048
     Dates: start: 20080201
  8. LENALIDOMIDE [Suspect]
     Indication: MULTIPLE MYELOMA
     Dosage: 5 MG, DAILY X 21D/28D,  5 MG, 1 IN 1 D, PO
     Route: 048
     Dates: start: 20110405
  9. DEXAMETHASONE [Concomitant]
  10. TAMSULOSIN HCL [Concomitant]
  11. BARACLUDE (ENTECAVIR)(UNKNOWN) [Concomitant]
  12. PROCHLORPERAZINE (PROCHLORPERAZINE)(UNKNOWN) [Concomitant]

REACTIONS (3)
  - OEDEMA PERIPHERAL [None]
  - NEUTROPENIA [None]
  - DEEP VEIN THROMBOSIS [None]
